FAERS Safety Report 13105560 (Version 2)
Quarter: 2017Q3

REPORT INFORMATION
  Report Type: Spontaneous
  Country: US (occurrence: US)
  Receive Date: 20170111
  Receipt Date: 20170822
  Transmission Date: 20171127
  Serious: Yes (Death, Life-Threatening, Hospitalization)
  Sender: FDA-Public Use
  Company Number: US-EPIC PHARMA LLC-2016EPC00029

PATIENT
  Age: 53 Year
  Sex: Male

DRUGS (5)
  1. RISPERIDONE. [Concomitant]
     Active Substance: RISPERIDONE
     Route: 065
  2. AMLODIPINE [Suspect]
     Active Substance: AMLODIPINE BESYLATE
     Indication: HYPERTENSION
     Dosage: UNK
     Route: 065
  3. TRAZODONE [Concomitant]
     Active Substance: TRAZODONE HYDROCHLORIDE
     Route: 065
  4. AMLODIPINE [Suspect]
     Active Substance: AMLODIPINE BESYLATE
     Dosage: 800 MG, ONCE (80 X 10 MG TABLETS)
     Route: 048
  5. DIVALPROEX DR [Concomitant]
     Active Substance: DIVALPROEX SODIUM
     Route: 065

REACTIONS (8)
  - Brain injury [Fatal]
  - Acute kidney injury [Fatal]
  - Completed suicide [Fatal]
  - Mental status changes [Fatal]
  - Overdose [Fatal]
  - Cardiac arrest [Recovering/Resolving]
  - Hypotension [Fatal]
  - Unresponsive to stimuli [Fatal]
